FAERS Safety Report 7621862-0 (Version None)
Quarter: 2011Q3

REPORT INFORMATION
  Report Type: 
  Country: None (occurrence: None)
  Receive Date: 20110720
  Receipt Date: 20110711
  Transmission Date: 20111222
  Serious: Yes (Hospitalization)
  Sender: FDA-Public Use
  Company Number: US-BIOGENIDEC-2011BI023330

PATIENT
  Age: 39 Year
  Sex: Female

DRUGS (1)
  1. TYSABRI [Suspect]
     Indication: MULTIPLE SCLEROSIS
     Route: 042
     Dates: start: 20110622

REACTIONS (12)
  - TREMOR [None]
  - CONFUSIONAL STATE [None]
  - NAUSEA [None]
  - VOMITING [None]
  - NONSPECIFIC REACTION [None]
  - MALAISE [None]
  - DYSARTHRIA [None]
  - HEADACHE [None]
  - ASTHENIA [None]
  - RASH PRURITIC [None]
  - FATIGUE [None]
  - PYREXIA [None]
